FAERS Safety Report 8716456 (Version 2)
Quarter: 2013Q4

REPORT INFORMATION
  Report Type: Spontaneous
  Country: US (occurrence: US)
  Receive Date: 20120810
  Receipt Date: 20131105
  Transmission Date: 20140711
  Serious: Yes (Other)
  Sender: FDA-Public Use
  Company Number: US-009507513-1207USA011972

PATIENT
  Sex: Male

DRUGS (3)
  1. VICTRELIS [Suspect]
     Route: 048
  2. REBETOL [Suspect]
     Dosage: FRO 36 WEEKS LENGTH OF THERAPY
     Route: 048
  3. PEGASYS [Suspect]
     Route: 058

REACTIONS (9)
  - Lip swelling [Unknown]
  - Renal pain [Unknown]
  - Anuria [Unknown]
  - Pyrexia [Unknown]
  - Headache [Unknown]
  - Aphagia [Unknown]
  - Stomatitis [Unknown]
  - Urticaria [Unknown]
  - Asthenia [Unknown]
